FAERS Safety Report 25257085 (Version 2)
Quarter: 2025Q2

REPORT INFORMATION
  Report Type: Spontaneous
  Country: US (occurrence: US)
  Receive Date: 20250430
  Receipt Date: 20250506
  Transmission Date: 20250717
  Serious: Yes (Other)
  Sender: PFIZER
  Company Number: US-PFIZER INC-PV202500050878

PATIENT
  Age: 81 Year
  Sex: Female
  Weight: 79.38 kg

DRUGS (4)
  1. PAXLOVID [Suspect]
     Active Substance: NIRMATRELVIR\RITONAVIR
     Indication: COVID-19 treatment
     Dates: start: 2021
  2. PAXLOVID [Suspect]
     Active Substance: NIRMATRELVIR\RITONAVIR
     Dates: start: 2022
  3. OMEPRAZOLE [Concomitant]
     Active Substance: OMEPRAZOLE
     Indication: Abdominal discomfort
  4. TYLENOL [Concomitant]
     Active Substance: ACETAMINOPHEN
     Dosage: EVERY DAY, TWICE A DAY

REACTIONS (6)
  - Sjogren^s syndrome [Unknown]
  - Discomfort [Not Recovered/Not Resolved]
  - Gastrooesophageal reflux disease [Unknown]
  - Taste disorder [Not Recovered/Not Resolved]
  - Gastrointestinal disorder [Unknown]
  - Malaise [Unknown]
